FAERS Safety Report 15897826 (Version 2)
Quarter: 2019Q2

REPORT INFORMATION
  Report Type: Spontaneous
  Country: CA (occurrence: CA)
  Receive Date: 20190201
  Receipt Date: 20190405
  Transmission Date: 20190711
  Serious: Yes (Hospitalization, Other)
  Sender: FDA-Public Use
  Company Number: CA-AMGEN-CANSL2019012300

PATIENT
  Sex: Male

DRUGS (3)
  1. NPLATE [Suspect]
     Active Substance: ROMIPLOSTIM
     Indication: IMMUNE THROMBOCYTOPENIC PURPURA
     Dosage: UNK
     Route: 065
  2. REVOLADE [Concomitant]
     Active Substance: ELTROMBOPAG
     Dosage: UNK
     Dates: start: 201803
  3. RITUXIMAB. [Concomitant]
     Active Substance: RITUXIMAB
     Dosage: (6 CYCLES)

REACTIONS (3)
  - Platelet count abnormal [Unknown]
  - Therapeutic response changed [Unknown]
  - Mucocutaneous haemorrhage [Unknown]
